FAERS Safety Report 14934266 (Version 1)
Quarter: 2018Q2

REPORT INFORMATION
  Report Type: Report from Study
  Country: None (occurrence: PT)
  Receive Date: 20180524
  Receipt Date: 20180524
  Transmission Date: 20180711
  Serious: Yes (Other)
  Sender: FDA-Public Use
  Company Number: PT-ABBVIE-18K-130-2365211-00

PATIENT
  Sex: Female

DRUGS (5)
  1. HUMIRA [Suspect]
     Active Substance: ADALIMUMAB
     Indication: CROHN^S DISEASE
     Route: 058
     Dates: start: 2016, end: 201804
  2. HUMIRA [Suspect]
     Active Substance: ADALIMUMAB
     Dosage: LOADING DOSE 2
     Route: 058
     Dates: start: 20150803, end: 20150803
  3. DAFLON [Concomitant]
     Indication: VARICOSE VEIN
     Route: 048
     Dates: end: 2018
  4. HUMIRA [Suspect]
     Active Substance: ADALIMUMAB
     Indication: CROHN^S DISEASE
     Dosage: LOADING DOSE 1
     Route: 058
     Dates: start: 20150720, end: 20150720
  5. HUMIRA [Suspect]
     Active Substance: ADALIMUMAB
     Route: 058
     Dates: start: 20150817, end: 2016

REACTIONS (1)
  - Varicose vein [Recovered/Resolved]

NARRATIVE: CASE EVENT DATE: 2017
